FAERS Safety Report 9939355 (Version 2)
Quarter: 2014Q1

REPORT INFORMATION
  Report Type: Spontaneous
  Country: US (occurrence: US)
  Receive Date: 20140303
  Receipt Date: 20140310
  Transmission Date: 20141002
  Serious: Yes (Hospitalization, Other)
  Sender: FDA-Public Use
  Company Number: US-BAXTER-2014BAX010222

PATIENT
  Age: 75 Year
  Sex: Female

DRUGS (2)
  1. DIANEAL LOW CALCIUM (ULTRABAG) [Suspect]
     Indication: PERITONEAL DIALYSIS
     Route: 033
  2. EXTRANEAL [Suspect]
     Indication: PERITONEAL DIALYSIS
     Route: 033

REACTIONS (2)
  - Gastrointestinal haemorrhage [Recovering/Resolving]
  - Duodenal ulcer [Recovering/Resolving]
